FAERS Safety Report 5258071-9 (Version None)
Quarter: 2007Q1

REPORT INFORMATION
  Report Type: 
  Country: None (occurrence: None)
  Receive Date: 20070307
  Receipt Date: 20070226
  Transmission Date: 20070707
  Serious: Yes (Other)
  Sender: FDA-Public Use
  Company Number: US-PFIZER INC-2006155413

PATIENT
  Sex: Female
  Weight: 68.5 kg

DRUGS (9)
  1. LYRICA [Suspect]
     Indication: TRIGEMINAL NEURALGIA
     Route: 048
  2. PRILOSEC [Concomitant]
     Route: 048
  3. LIPITOR [Concomitant]
     Route: 048
  4. GLYBURIDE [Concomitant]
     Route: 048
  5. CELEXA [Concomitant]
     Route: 048
  6. MAXZIDE [Concomitant]
     Route: 048
  7. MECLIZINE [Concomitant]
     Route: 048
  8. ALL OTHER THERAPEUTIC PRODUCTS [Concomitant]
  9. LEVOTHROID [Concomitant]
     Route: 048

REACTIONS (3)
  - ADVERSE EVENT [None]
  - MENTAL STATUS CHANGES [None]
  - NEUROLOGICAL SYMPTOM [None]
